FAERS Safety Report 5739385-2 (Version None)
Quarter: 2008Q2

REPORT INFORMATION
  Report Type: 
  Country: None (occurrence: None)
  Receive Date: 20080515
  Receipt Date: 20080509
  Transmission Date: 20081010
  Serious: Yes (Hospitalization, Other)
  Sender: FDA-Public Use
  Company Number: US-PFIZER INC-2008032508

PATIENT
  Sex: Male
  Weight: 76.2 kg

DRUGS (1)
  1. CHANTIX [Suspect]
     Indication: SMOKING CESSATION THERAPY
     Route: 048
     Dates: start: 20080313, end: 20080301

REACTIONS (3)
  - CEREBROVASCULAR ACCIDENT [None]
  - INJURY [None]
  - SINUSITIS [None]
